FAERS Safety Report 4933193-8 (Version None)
Quarter: 2006Q1

REPORT INFORMATION
  Report Type: 
  Country: None (occurrence: None)
  Receive Date: 20060306
  Receipt Date: 20050824
  Transmission Date: 20060701
  Serious: Yes (Hospitalization)
  Sender: FDA-Public Use
  Company Number: US-MERCK-0508USA04115

PATIENT
  Age: 61 Year
  Sex: Female

DRUGS (7)
  1. VIOXX [Suspect]
     Route: 048
     Dates: start: 20000531
  2. AXID [Concomitant]
     Route: 048
  3. OGEN [Concomitant]
     Route: 065
  4. MEDROXYPROGESTERONE ACETATE [Concomitant]
     Route: 065
  5. METHOTREXATE [Concomitant]
     Route: 065
  6. MECLIZINE [Concomitant]
     Route: 048
  7. ALEVE [Concomitant]
     Indication: PAIN
     Route: 065

REACTIONS (17)
  - ANXIETY [None]
  - BLOOD PRESSURE INCREASED [None]
  - CEREBROVASCULAR ACCIDENT [None]
  - CHEST PAIN [None]
  - GASTROOESOPHAGEAL REFLUX DISEASE [None]
  - GLIOSIS [None]
  - HAEMANGIOMA [None]
  - HELICOBACTER GASTRITIS [None]
  - HIATUS HERNIA [None]
  - INTERVERTEBRAL DISC DEGENERATION [None]
  - NEUROPATHY PERIPHERAL [None]
  - OBSTRUCTIVE AIRWAYS DISORDER [None]
  - OSTEOPOROSIS [None]
  - RENAL CYST [None]
  - RHEUMATOID ARTHRITIS [None]
  - SYNOVITIS [None]
  - TRANSIENT ISCHAEMIC ATTACK [None]
